FAERS Safety Report 21005449 (Version 2)
Quarter: 2022Q3

REPORT INFORMATION
  Report Type: Spontaneous
  Country: PL (occurrence: None)
  Receive Date: 20220624
  Receipt Date: 20220722
  Transmission Date: 20221027
  Serious: Yes (Life-Threatening, Hospitalization)
  Sender: FDA-Public Use
  Company Number: 2022A230266

PATIENT
  Age: 80 Year
  Sex: Female

DRUGS (39)
  1. QUETIAPINE FUMARATE [Suspect]
     Active Substance: QUETIAPINE FUMARATE
     Indication: Product used for unknown indication
     Route: 065
  2. QUETIAPINE FUMARATE [Suspect]
     Active Substance: QUETIAPINE FUMARATE
     Indication: Depression
     Route: 065
  3. LEVOTHYROXINE SODIUM [Suspect]
     Active Substance: LEVOTHYROXINE SODIUM
     Indication: Product used for unknown indication
     Route: 065
  4. ESTAZOLAM [Suspect]
     Active Substance: ESTAZOLAM
     Indication: Product used for unknown indication
     Route: 065
  5. ESTAZOLAM [Suspect]
     Active Substance: ESTAZOLAM
     Indication: Depression
     Route: 065
  6. BISOPROLOL FUMARATE [Suspect]
     Active Substance: BISOPROLOL FUMARATE
     Indication: Product used for unknown indication
     Route: 065
  7. BISOPROLOL FUMARATE [Suspect]
     Active Substance: BISOPROLOL FUMARATE
     Indication: Cardiac failure
     Route: 065
  8. EYLEA [Suspect]
     Active Substance: AFLIBERCEPT
     Indication: Neovascular age-related macular degeneration
     Dosage: INTRAVITREAL
     Route: 065
     Dates: start: 20220217
  9. SPIRONOLACTONE [Suspect]
     Active Substance: SPIRONOLACTONE
     Indication: Product used for unknown indication
     Route: 065
  10. SPIRONOLACTONE [Suspect]
     Active Substance: SPIRONOLACTONE
     Indication: Cardiac failure
     Route: 065
  11. SODIUM CHLORIDE [Suspect]
     Active Substance: SODIUM CHLORIDE
     Indication: Product used for unknown indication
     Route: 065
  12. AFLIBERCEPT [Suspect]
     Active Substance: AFLIBERCEPT
     Indication: Neovascular age-related macular degeneration
     Dosage: INTRAVITREAL
     Route: 065
     Dates: start: 20220217
  13. CLONIDINE [Suspect]
     Active Substance: CLONIDINE
     Indication: Hypertension
     Route: 065
     Dates: start: 20211030
  14. ALLOPURINOL [Suspect]
     Active Substance: ALLOPURINOL
     Indication: Product used for unknown indication
     Route: 065
  15. ALLOPURINOL [Suspect]
     Active Substance: ALLOPURINOL
     Indication: Hyperuricaemia
     Route: 065
  16. RANITIDINE HYDROCHLORIDE [Suspect]
     Active Substance: RANITIDINE HYDROCHLORIDE
     Indication: Product used for unknown indication
     Route: 065
  17. RANITIDINE HYDROCHLORIDE [Suspect]
     Active Substance: RANITIDINE HYDROCHLORIDE
     Indication: Gastrooesophageal reflux disease
     Route: 065
  18. ATORVASTATIN [Suspect]
     Active Substance: ATORVASTATIN
     Indication: Product used for unknown indication
     Route: 065
  19. ATORVASTATIN [Suspect]
     Active Substance: ATORVASTATIN
     Indication: Hyperlipidaemia
     Route: 065
  20. ASPIRIN [Suspect]
     Active Substance: ASPIRIN
     Indication: Product used for unknown indication
     Route: 065
  21. ASPIRIN [Suspect]
     Active Substance: ASPIRIN
     Indication: Cardiac failure
     Route: 065
  22. EUTHYROX [Concomitant]
     Active Substance: LEVOTHYROXINE SODIUM
     Indication: Product used for unknown indication
     Route: 065
     Dates: start: 1971
  23. VINPOVEN [Concomitant]
     Indication: Product used for unknown indication
     Route: 065
  24. ASPIRIN [Concomitant]
     Active Substance: ASPIRIN
     Indication: Product used for unknown indication
     Route: 065
     Dates: start: 2001
  25. ALCAINE [Concomitant]
     Active Substance: PROPARACAINE HYDROCHLORIDE
     Indication: Product used for unknown indication
     Route: 065
     Dates: start: 20220217
  26. ANASTROZOLE [Concomitant]
     Active Substance: ANASTROZOLE
     Indication: Product used for unknown indication
     Route: 065
     Dates: start: 2017
  27. VIGAMOX [Concomitant]
     Active Substance: MOXIFLOXACIN HYDROCHLORIDE
     Indication: Product used for unknown indication
     Route: 065
     Dates: start: 20220217
  28. TRAMADOL HYDROCHLORIDE [Concomitant]
     Active Substance: TRAMADOL HYDROCHLORIDE
     Indication: Product used for unknown indication
     Route: 065
  29. TROPICAMIDE [Concomitant]
     Active Substance: TROPICAMIDE
     Indication: Product used for unknown indication
     Route: 065
     Dates: start: 20220217
  30. BETADINE [Concomitant]
     Active Substance: POVIDONE-IODINE
     Indication: Product used for unknown indication
     Route: 065
     Dates: start: 20220217
  31. CARDURA [Concomitant]
     Active Substance: DOXAZOSIN MESYLATE
     Indication: Product used for unknown indication
     Route: 065
     Dates: start: 20211030
  32. QUETIAPINE [Concomitant]
     Active Substance: QUETIAPINE
     Indication: Product used for unknown indication
     Route: 065
     Dates: start: 20191209
  33. LERCANIDIPINE [Concomitant]
     Active Substance: LERCANIDIPINE
     Indication: Product used for unknown indication
     Route: 065
     Dates: start: 20211030
  34. DOXAZOSINA AUROVITAS [Concomitant]
     Indication: Product used for unknown indication
     Route: 065
  35. ALLOPURINOL [Concomitant]
     Active Substance: ALLOPURINOL
     Indication: Product used for unknown indication
     Route: 065
     Dates: start: 2015
  36. TULIP [FLURBIPROFEN] [Concomitant]
     Indication: Product used for unknown indication
     Route: 065
     Dates: start: 2010
  37. LIDOCAINE [Concomitant]
     Active Substance: LIDOCAINE
     Indication: Product used for unknown indication
     Route: 065
     Dates: start: 20220217
  38. VALZEK [Concomitant]
     Indication: Product used for unknown indication
     Route: 065
     Dates: start: 20220419, end: 20220518
  39. NEBIVOLOL [Concomitant]
     Active Substance: NEBIVOLOL
     Indication: Product used for unknown indication
     Route: 065
     Dates: start: 20220419, end: 20220518

REACTIONS (4)
  - Hypertension [Recovered/Resolved]
  - Blood sodium decreased [Recovered/Resolved]
  - Blood chloride decreased [Unknown]
  - Electrocardiogram abnormal [Unknown]

NARRATIVE: CASE EVENT DATE: 20220413
